FAERS Safety Report 6756993-0 (Version None)
Quarter: 2010Q2

REPORT INFORMATION
  Report Type: 
  Country: None (occurrence: None)
  Receive Date: 20100604
  Receipt Date: 20100526
  Transmission Date: 20101027
  Serious: Yes (Hospitalization)
  Sender: FDA-Public Use
  Company Number: JP-ABBOTT-10P-087-0623972-00

PATIENT
  Sex: Male
  Weight: 60 kg

DRUGS (19)
  1. HUMIRA [Suspect]
     Indication: RHEUMATOID ARTHRITIS
     Route: 058
     Dates: start: 20090909, end: 20091213
  2. PREDNISOLONE [Suspect]
     Indication: RHEUMATOID ARTHRITIS
     Dosage: 8MG DAILY
     Route: 048
     Dates: end: 20090126
  3. PREDNISOLONE [Suspect]
     Dosage: 5MG DAILY
     Dates: start: 20090127, end: 20090420
  4. PREDNISOLONE [Suspect]
     Dosage: 4MG DAILY
     Dates: start: 20090421, end: 20090520
  5. PREDNISOLONE [Suspect]
     Dosage: 3MG DAILY
     Dates: start: 20090521, end: 20090615
  6. PREDNISOLONE [Suspect]
     Dosage: 2MG DAILY
     Dates: start: 20090616, end: 20090713
  7. PREDNISOLONE [Suspect]
     Dosage: 1MG DAILY
     Dates: start: 20090714, end: 20090810
  8. PREDNISOLONE [Suspect]
     Dates: start: 20090811, end: 20091105
  9. METHOTREXATE [Suspect]
     Indication: RHEUMATOID ARTHRITIS
     Route: 048
     Dates: end: 20080625
  10. METHOTREXATE [Suspect]
     Dates: start: 20080626, end: 20090112
  11. METHOTREXATE [Suspect]
     Dates: start: 20090113
  12. METHOTREXATE [Suspect]
  13. FOLIC ACID [Concomitant]
     Indication: DRUG USE FOR UNKNOWN INDICATION
     Route: 048
  14. LOXOPROFEN SODIUM HYDRATE [Concomitant]
     Indication: RHEUMATOID ARTHRITIS
     Route: 048
  15. OMEPRAZOLE [Concomitant]
     Indication: DRUG USE FOR UNKNOWN INDICATION
     Route: 048
  16. ALFACALCIDOL [Concomitant]
     Indication: OSTEOPOROSIS PROPHYLAXIS
     Route: 048
  17. PYRIDOXAL PHOSPHATE HYDRATE [Concomitant]
     Indication: DRUG USE FOR UNKNOWN INDICATION
     Route: 048
     Dates: start: 20080909
  18. ISONIAZID [Concomitant]
     Indication: DRUG USE FOR UNKNOWN INDICATION
     Route: 048
     Dates: start: 20080904, end: 20090323
  19. URSODIOL [Concomitant]
     Indication: DRUG USE FOR UNKNOWN INDICATION
     Dates: start: 20090113

REACTIONS (6)
  - ARTHRITIS BACTERIAL [None]
  - INTERSTITIAL LUNG DISEASE [None]
  - INTERVERTEBRAL DISCITIS [None]
  - JOINT EFFUSION [None]
  - PYREXIA [None]
  - STAPHYLOCOCCAL SEPSIS [None]
